FAERS Safety Report 5254202-5 (Version None)
Quarter: 2007Q1

REPORT INFORMATION
  Report Type: 
  Country: None (occurrence: None)
  Receive Date: 20070302
  Receipt Date: 20070216
  Transmission Date: 20070707
  Serious: Yes (Hospitalization)
  Sender: FDA-Public Use
  Company Number: HU-ELI_LILLY_AND_COMPANY-HU200702001119

PATIENT
  Age: 56 Year
  Sex: Female

DRUGS (4)
  1. GEMZAR [Suspect]
     Indication: LUNG NEOPLASM MALIGNANT
     Dosage: 2200 MG, UNKNOWN
     Route: 042
     Dates: start: 20061201
  2. CISPLATIN [Concomitant]
     Indication: LUNG NEOPLASM MALIGNANT
     Dosage: 140 MG, UNK
     Route: 042
     Dates: start: 20061201
  3. SPIRIVA [Concomitant]
     Dosage: 1 CAPSULE, UNK
     Route: 055
  4. SERETIDE [Concomitant]

REACTIONS (3)
  - BRONCHITIS CHRONIC [None]
  - DERMATITIS [None]
  - GASTRITIS [None]
